FAERS Safety Report 4443327-X (Version None)
Quarter: 2004Q3

REPORT INFORMATION
  Report Type: 
  Country: None (occurrence: None)
  Receive Date: 20040728
  Receipt Date: 20040518
  Transmission Date: 20050211
  Serious: No
  Sender: FDA-Public Use
  Company Number: USA040567923

PATIENT
  Age: 39 Year
  Sex: Female
  Weight: 57 kg

DRUGS (3)
  1. STRATTERA [Suspect]
     Indication: ATTENTION DEFICIT/HYPERACTIVITY DISORDER
     Dosage: 40 MG IN THE MORNING
     Dates: start: 20040518
  2. FLUOXETINE HCL [Concomitant]
  3. CEPHALEXIN [Concomitant]

REACTIONS (6)
  - FEELING JITTERY [None]
  - HOT FLUSH [None]
  - NAUSEA [None]
  - NERVOUSNESS [None]
  - TREMOR [None]
  - VOMITING [None]
